FAERS Safety Report 9023421 (Version 5)
Quarter: 2013Q1

REPORT INFORMATION
  Report Type: Spontaneous
  Country: GB (occurrence: GB)
  Receive Date: 20130121
  Receipt Date: 20130222
  Transmission Date: 20140127
  Serious: Yes (Life-Threatening, Hospitalization, Other)
  Sender: FDA-Public Use
  Company Number: GB-VERTEX PHARMACEUTICALS INC.-2013-000891

PATIENT
  Age: 63 None
  Sex: Male
  Weight: 71 kg

DRUGS (5)
  1. INCIVO [Suspect]
     Indication: HEPATITIS C
     Dosage: 750 MG, TID
     Route: 048
     Dates: start: 20121207, end: 20130115
  2. PEGASYS [Suspect]
     Indication: HEPATITIS C
     Dosage: DOSAGE FORM: UNSPECIFIED
     Route: 058
     Dates: start: 20121207, end: 20130110
  3. COPEGUS [Concomitant]
     Indication: HEPATITIS C
     Dosage: DOSAGE FORM: UNSPECIFIED, DOSE OF 600/400 (UNIT UNSPECIFIED) (FREQUENCY UNSPECIFIED)
     Route: 048
     Dates: start: 20121207, end: 20130110
  4. ASPIRIN [Concomitant]
     Indication: ATRIAL FIBRILLATION
     Route: 048
  5. THIAMINE [Concomitant]
     Indication: PRODUCT USED FOR UNKNOWN INDICATION
     Route: 048

REACTIONS (8)
  - Hypotension [Unknown]
  - Pyrexia [Not Recovered/Not Resolved]
  - Dehydration [Unknown]
  - Atrial tachycardia [Not Recovered/Not Resolved]
  - Sepsis [Not Recovered/Not Resolved]
  - Confusional state [Unknown]
  - Eczema [Not Recovered/Not Resolved]
  - Rash generalised [Not Recovered/Not Resolved]
